FAERS Safety Report 7536259-1 (Version None)
Quarter: 2011Q2

REPORT INFORMATION
  Report Type: 
  Country: None (occurrence: None)
  Receive Date: 20110602
  Receipt Date: 20110524
  Transmission Date: 20111010
  Serious: Yes (Other)
  Sender: FDA-Public Use
  Company Number: TRP_07678_2011

PATIENT
  Sex: Female

DRUGS (8)
  1. NOVOLIN 70/30 [Concomitant]
  2. ADVAFERON [Suspect]
     Indication: HEPATITIS C
     Dosage: (9MILLION IU 3X/WEEK SUBCUTANEOUS), ([REGIMEN #2] UNK SUBCUTANEOUS)
     Route: 058
     Dates: start: 20110101
  3. ADVAFERON [Suspect]
     Indication: HEPATITIS C
     Dosage: (9MILLION IU 3X/WEEK SUBCUTANEOUS), ([REGIMEN #2] UNK SUBCUTANEOUS)
     Route: 058
     Dates: start: 20060407, end: 20110101
  4. AMLODIPINE [Concomitant]
  5. RABEPRAZOLE SODIUM [Concomitant]
  6. SELBEX [Concomitant]
  7. LIVACT [Concomitant]
  8. MICARDIS [Concomitant]

REACTIONS (2)
  - INJECTION SITE NECROSIS [None]
  - INJECTION SITE INDURATION [None]
